FAERS Safety Report 5525680-9 (Version None)
Quarter: 2007Q4

REPORT INFORMATION
  Report Type: 
  Country: None (occurrence: None)
  Receive Date: 20071120
  Receipt Date: 20071120
  Transmission Date: 20080405
  Serious: Yes (Other)
  Sender: FDA-Public Use
  Company Number: None

PATIENT
  Sex: Female
  Weight: 95.2554 kg

DRUGS (2)
  1. CYMBALTA [Suspect]
     Indication: DEPRESSION
     Dosage: 30MG 1/DAY PO
     Route: 048
     Dates: start: 20060101, end: 20071119
  2. CYMBALTA [Suspect]
     Indication: POST-TRAUMATIC STRESS DISORDER
     Dosage: 30MG 1/DAY PO
     Route: 048
     Dates: start: 20060101, end: 20071119

REACTIONS (10)
  - ANGER [None]
  - CHILLS [None]
  - CRYING [None]
  - DYSKINESIA [None]
  - IRRITABILITY [None]
  - PAIN [None]
  - PARAESTHESIA [None]
  - THINKING ABNORMAL [None]
  - TREMOR [None]
  - WITHDRAWAL SYNDROME [None]
